FAERS Safety Report 18581082 (Version 4)
Quarter: 2021Q2

REPORT INFORMATION
  Report Type: Spontaneous
  Country: US (occurrence: US)
  Receive Date: 20201204
  Receipt Date: 20210506
  Transmission Date: 20210717
  Serious: No
  Sender: FDA-Public Use
  Company Number: US-PFIZER INC-2020361861

PATIENT
  Age: 62 Year
  Sex: Male

DRUGS (2)
  1. CRESTOR [Concomitant]
     Active Substance: ROSUVASTATIN CALCIUM
     Indication: DYSLIPIDAEMIA
     Dosage: UNK
  2. SUTENT [Suspect]
     Active Substance: SUNITINIB MALATE
     Indication: NEUROENDOCRINE CARCINOMA
     Dosage: 37.5 MG

REACTIONS (9)
  - Product prescribing issue [Unknown]
  - Neoplasm progression [Unknown]
  - Abdominal pain upper [Unknown]
  - Gastric disorder [Unknown]
  - Change of bowel habit [Unknown]
  - Diarrhoea [Recovering/Resolving]
  - Muscular weakness [Unknown]
  - Muscle atrophy [Unknown]
  - Headache [Unknown]

NARRATIVE: CASE EVENT DATE: 201403
